FAERS Safety Report 8119098-2 (Version None)
Quarter: 2012Q1

REPORT INFORMATION
  Report Type: 
  Country: None (occurrence: None)
  Receive Date: 20120207
  Receipt Date: 20120131
  Transmission Date: 20120608
  Serious: Yes (Hospitalization)
  Sender: FDA-Public Use
  Company Number: PHHO2011US02728

PATIENT
  Sex: Female
  Weight: 52.3 kg

DRUGS (3)
  1. VERAPAMIL [Suspect]
  2. EXELON [Suspect]
     Indication: DEMENTIA ALZHEIMER'S TYPE
     Dosage: CODE NOT BROKEN
     Dates: start: 20110111, end: 20110208
  3. BLINDED NO TREATMENT RECEIVED [Suspect]
     Indication: DEMENTIA ALZHEIMER'S TYPE
     Dosage: CODE NOT BROKEN
     Dates: start: 20110111, end: 20110208

REACTIONS (4)
  - SYNCOPE [None]
  - DEHYDRATION [None]
  - HYPOVOLAEMIA [None]
  - ANAEMIA [None]
